FAERS Safety Report 8313514-9 (Version None)
Quarter: 2012Q2

REPORT INFORMATION
  Report Type: 
  Country: None (occurrence: None)
  Receive Date: 20120426
  Receipt Date: 20120416
  Transmission Date: 20120825
  Serious: Yes (Other)
  Sender: FDA-Public Use
  Company Number: BR-JNJFOC-20120408331

PATIENT
  Age: 53 Year
  Sex: Male

DRUGS (2)
  1. LORAX [Concomitant]
     Indication: SLEEP DISORDER THERAPY
     Route: 065
     Dates: start: 20100101, end: 20110101
  2. RISPERIDONE [Suspect]
     Indication: DEPRESSION
     Route: 065
     Dates: start: 20100101, end: 20110101

REACTIONS (4)
  - RESTLESSNESS [None]
  - SUICIDE ATTEMPT [None]
  - DEPRESSED MOOD [None]
  - DYSKINESIA [None]
